FAERS Safety Report 16866110 (Version 1)
Quarter: 2019Q3

REPORT INFORMATION
  Report Type: Spontaneous
  Country: US (occurrence: US)
  Receive Date: 20190930
  Receipt Date: 20190930
  Transmission Date: 20191005
  Serious: No
  Sender: FDA-Public Use
  Company Number: US-ALLERGAN-1858005US

PATIENT
  Sex: Male
  Weight: 111.11 kg

DRUGS (3)
  1. VRAYLAR [Suspect]
     Active Substance: CARIPRAZINE
     Indication: AGGRESSION
     Dosage: 1.5 MG, QD
     Route: 048
     Dates: start: 201811
  2. VRAYLAR [Suspect]
     Active Substance: CARIPRAZINE
     Indication: BEHAVIOUR DISORDER
  3. LOT OF OTHER MEDICATIONS [Concomitant]

REACTIONS (2)
  - Drug ineffective for unapproved indication [Unknown]
  - Off label use [Unknown]

NARRATIVE: CASE EVENT DATE: 2018
